FAERS Safety Report 5032902-X (Version None)
Quarter: 2006Q2

REPORT INFORMATION
  Report Type: 
  Country: None (occurrence: None)
  Receive Date: 20060622
  Receipt Date: 20041213
  Transmission Date: 20061013
  Serious: Yes (Hospitalization, Other)
  Sender: FDA-Public Use
  Company Number: PHNU2004DE04168

PATIENT
  Age: 54 Year
  Sex: Female
  Weight: 70 kg

DRUGS (11)
  1. DEXAMETHASONE TAB [Concomitant]
     Route: 065
     Dates: start: 20010801, end: 20011001
  2. DEXAMETHASONE TAB [Concomitant]
     Route: 065
     Dates: start: 20030601, end: 20030901
  3. IDARUBICIN HCL [Concomitant]
     Route: 065
     Dates: start: 20010801, end: 20011001
  4. IDARUBICIN HCL [Concomitant]
     Route: 065
     Dates: start: 20030601, end: 20030901
  5. IFOSFAMIDE [Concomitant]
     Route: 065
     Dates: start: 20031001
  6. EPIRUBICIN [Concomitant]
     Route: 065
     Dates: start: 20031001
  7. ETOPOSIDE [Concomitant]
     Route: 065
     Dates: start: 20031001
  8. INTERFERON [Concomitant]
     Route: 065
     Dates: start: 20040501, end: 20040601
  9. KEVATRIL [Concomitant]
     Route: 065
  10. METOCLOPRAMIDE [Concomitant]
     Route: 065
  11. ZOMETA [Suspect]
     Indication: PLASMACYTOMA
     Dosage: 4 MG, QMO
     Dates: start: 20010201, end: 20050901

REACTIONS (7)
  - DENTAL OPERATION [None]
  - LOCAL SWELLING [None]
  - OSTEITIS [None]
  - OSTEONECROSIS [None]
  - PAIN IN JAW [None]
  - PURULENCE [None]
  - STOMATITIS [None]
